FAERS Safety Report 26148754 (Version 1)
Quarter: 2025Q4

REPORT INFORMATION
  Report Type: Spontaneous
  Country: US (occurrence: None)
  Receive Date: 20251212
  Receipt Date: 20251212
  Transmission Date: 20260118
  Serious: No
  Sender: ENDO
  Company Number: US-ENDO USA, INC.-2025-002180

PATIENT
  Sex: Female

DRUGS (1)
  1. FROVA [Suspect]
     Active Substance: FROVATRIPTAN SUCCINATE
     Indication: Migraine
     Dosage: UNK UNKNOWN, UNKNOWN (FOR YEARS, MIGHT BE 20 YEARS AGO)
     Route: 065

REACTIONS (3)
  - Back disorder [Unknown]
  - Product dose omission issue [Unknown]
  - Product availability issue [Not Recovered/Not Resolved]
